FAERS Safety Report 5584855-3 (Version None)
Quarter: 2008Q1

REPORT INFORMATION
  Report Type: 
  Country: None (occurrence: None)
  Receive Date: 20080104
  Receipt Date: 20071228
  Transmission Date: 20080703
  Serious: Yes (Hospitalization)
  Sender: FDA-Public Use
  Company Number: 021666

PATIENT
  Age: 43 Year
  Sex: Male

DRUGS (3)
  1. METHYLPREDNISOLONE [Suspect]
     Indication: NERVE COMPRESSION
     Dosage: DOSE PAK, ORAL
     Route: 048
     Dates: start: 20071128, end: 20071202
  2. NEURONTIN [Concomitant]
  3. NORCO [Concomitant]

REACTIONS (4)
  - CONDITION AGGRAVATED [None]
  - VERTIGO [None]
  - VOMITING [None]
  - WHITE BLOOD CELL COUNT INCREASED [None]
